FAERS Safety Report 13901912 (Version 1)
Quarter: 2017Q3

REPORT INFORMATION
  Report Type: Spontaneous
  Country: US (occurrence: US)
  Receive Date: 20170824
  Receipt Date: 20170824
  Transmission Date: 20171127
  Serious: No
  Sender: FDA-Public Use
  Company Number: US-ROCHE-1129419

PATIENT
  Sex: Female

DRUGS (4)
  1. COUMADINE [Concomitant]
     Active Substance: WARFARIN SODIUM
  2. HERCEPTIN [Suspect]
     Active Substance: TRASTUZUMAB
     Route: 065
     Dates: start: 19991228
  3. TAXOL [Concomitant]
     Active Substance: PACLITAXEL
  4. HERCEPTIN [Suspect]
     Active Substance: TRASTUZUMAB
     Indication: PRODUCT USED FOR UNKNOWN INDICATION
     Route: 065
     Dates: start: 19990921

REACTIONS (5)
  - Hyperglycaemia [Unknown]
  - Paraesthesia [Unknown]
  - Thrombosis [Unknown]
  - Aspergillus infection [Unknown]
  - Mucosal inflammation [Unknown]
